FAERS Safety Report 6143156-5 (Version None)
Quarter: 2009Q2

REPORT INFORMATION
  Report Type: 
  Country: None (occurrence: None)
  Receive Date: 20090403
  Receipt Date: 20090319
  Transmission Date: 20091009
  Serious: Yes (Hospitalization)
  Sender: FDA-Public Use
  Company Number: JP-BRISTOL-MYERS SQUIBB COMPANY-14552020

PATIENT
  Age: 27 Year
  Sex: Male
  Weight: 52 kg

DRUGS (6)
  1. ABILIFY [Suspect]
     Indication: SCHIZOPHRENIA
     Dosage: 18JUL08-31JUL08:12MG 01AUG08-28AUG08:18MG 29AUG08-14JAN09:24MG 15JAN09-18FEB09:21MG 19FEB9-:24MG
     Route: 048
     Dates: start: 20080718
  2. LEXOTAN [Concomitant]
     Dates: start: 20080717
  3. BENZALIN [Concomitant]
     Dates: start: 20080717
  4. AMOBAN [Concomitant]
     Dates: start: 20080717
  5. RESLIN [Concomitant]
     Dates: start: 20080717
  6. WYPAX [Concomitant]
     Dosage: INCREASED FROM 2MG TO 3MG/DAY
     Dates: start: 20090204

REACTIONS (3)
  - ANXIETY [None]
  - IRRITABILITY [None]
  - PSYCHIATRIC SYMPTOM [None]
